FAERS Safety Report 13289921 (Version 1)
Quarter: 2017Q1

REPORT INFORMATION
  Report Type: Spontaneous
  Country: US (occurrence: US)
  Receive Date: 20170302
  Receipt Date: 20170302
  Transmission Date: 20170428
  Serious: Yes (Other)
  Sender: FDA-Public Use
  Company Number: US-DEPOMED, INC.-US-2016DEP007446

PATIENT

DRUGS (4)
  1. GRALISE [Suspect]
     Active Substance: GABAPENTIN
     Dosage: 1200 MG, QD, WITH THE EVENING MEAL
     Dates: start: 20160111, end: 20160225
  2. GRALISE [Suspect]
     Active Substance: GABAPENTIN
     Indication: NEUROPATHY PERIPHERAL
     Dosage: 4800 MG IN 24 HOURS
     Route: 048
     Dates: start: 20160127, end: 20160127
  3. GRALISE [Suspect]
     Active Substance: GABAPENTIN
     Dosage: UNK, ONCE DAILY
     Route: 048
     Dates: start: 20160101
  4. GRALISE [Suspect]
     Active Substance: GABAPENTIN
     Dosage: UNK, 3 DF IN THE EVENING
     Route: 048
     Dates: start: 20160126, end: 20160126

REACTIONS (6)
  - Peripheral swelling [Recovering/Resolving]
  - Inappropriate schedule of drug administration [Unknown]
  - Prescribed overdose [Unknown]
  - Condition aggravated [Unknown]
  - Neuralgia [Unknown]
  - Off label use [Recovered/Resolved]

NARRATIVE: CASE EVENT DATE: 20160101
